FAERS Safety Report 6525908-2 (Version None)
Quarter: 2009Q4

REPORT INFORMATION
  Report Type: 
  Country: None (occurrence: None)
  Receive Date: 20091222
  Receipt Date: 20091217
  Transmission Date: 20100525
  Serious: Yes (Hospitalization)
  Sender: FDA-Public Use
  Company Number: CAP09000327

PATIENT
  Age: 89 Year
  Sex: Female

DRUGS (19)
  1. ACTONEL [Suspect]
     Indication: OSTEOPOROSIS
     Dosage: 150 MG ONCE A MONTH, ORAL; 150 MG ONCE A WEEK, ORAL
     Route: 048
     Dates: start: 20090701, end: 20090101
  2. ACTONEL [Suspect]
     Indication: OSTEOPOROSIS
     Dosage: 150 MG ONCE A MONTH, ORAL; 150 MG ONCE A WEEK, ORAL
     Route: 048
     Dates: start: 20091026, end: 20091108
  3. METHOTREXATE [Concomitant]
  4. HYDROXYCHLOROQUINE SULFATE [Concomitant]
  5. CITALOPRAM HYDROBROMIDE [Concomitant]
  6. FERROUS SULFATE TAB [Concomitant]
  7. DONEPEZIL HCL [Concomitant]
  8. HEPARIN [Concomitant]
  9. RABEPRAZOLE SODIUM [Concomitant]
  10. DOCUSATE SODIUM (DOCUSATE SODIUM) [Concomitant]
  11. CALCIUM CARBONATE [Concomitant]
  12. FOLIC ACID [Concomitant]
  13. ERGOCALCIFEROL [Concomitant]
  14. ZOPICLONE (ZOPICLONE) [Concomitant]
  15. TIMOLOL MALEATE [Concomitant]
  16. SIMVASTATIN [Concomitant]
  17. ASPIRIN [Concomitant]
  18. LASIX [Concomitant]
  19. METOPROLOL (METOPROLOL) [Concomitant]

REACTIONS (3)
  - CARDIAC FAILURE CONGESTIVE [None]
  - DRUG ADMINISTRATION ERROR [None]
  - INAPPROPRIATE SCHEDULE OF DRUG ADMINISTRATION [None]
